FAERS Safety Report 4297291-7 (Version None)
Quarter: 2004Q1

REPORT INFORMATION
  Report Type: 
  Country: None (occurrence: None)
  Receive Date: 20040212
  Receipt Date: 20030219
  Transmission Date: 20041129
  Serious: Yes (Hospitalization)
  Sender: FDA-Public Use
  Company Number: A03200300326

PATIENT
  Age: 65 Year
  Sex: Male

DRUGS (6)
  1. AMBIEN [Suspect]
     Indication: INSOMNIA
     Dosage: 75 MG QD -ORAL
     Route: 048
     Dates: start: 20030127, end: 20030127
  2. AMBIEN [Suspect]
     Indication: SUICIDE ATTEMPT
     Dosage: 75 MG QD -ORAL
     Route: 048
     Dates: start: 20030127, end: 20030127
  3. AMBIEN [Suspect]
     Indication: SUICIDE ATTEMPT
     Dosage: 5 MG HS - ORAL
     Route: 048
     Dates: end: 20030126
  4. ESCITALOPRAM OXALATE - UNKNOWN - 10 MG [Suspect]
     Indication: DEPRESSION
     Dosage: 20 MG QD - ORAL
     Route: 048
     Dates: start: 20030118, end: 20030127
  5. ESCITALOPRAM OXALATE - UNKNOWN - 10 MG [Suspect]
     Indication: DEPRESSION
     Dosage: 10 MG QD - ORAL
     Route: 048
     Dates: start: 20030103, end: 20030117
  6. BUPROPION HYDROCHLORIDE [Concomitant]

REACTIONS (1)
  - INTENTIONAL OVERDOSE [None]
